FAERS Safety Report 9135676 (Version 2)
Quarter: 2013Q1

REPORT INFORMATION
  Report Type: Spontaneous
  Country: BR (occurrence: BR)
  Receive Date: 20130304
  Receipt Date: 20130311
  Transmission Date: 20140127
  Serious: Yes (Other)
  Sender: FDA-Public Use
  Company Number: PHHY2013BR020706

PATIENT
  Sex: Female
  Weight: 63 kg

DRUGS (1)
  1. ESTRAGEST TTS [Suspect]
     Indication: HORMONE REPLACEMENT THERAPY
     Dosage: 1 DF, THE PATCH WAS INSERTED ON MON AND WAS REPLACED ON THU
     Route: 062

REACTIONS (13)
  - Hypothyroidism [Not Recovered/Not Resolved]
  - Breast calcifications [Not Recovered/Not Resolved]
  - Diabetes mellitus [Not Recovered/Not Resolved]
  - Breast cyst [Not Recovered/Not Resolved]
  - Underdose [Unknown]
  - Somnolence [Recovered/Resolved]
  - Psychiatric symptom [Recovered/Resolved]
  - Cough [Recovered/Resolved]
  - Gastrooesophageal reflux disease [Recovered/Resolved]
  - Migraine [Recovered/Resolved]
  - Libido decreased [Not Recovered/Not Resolved]
  - Hot flush [Not Recovered/Not Resolved]
  - Incorrect dose administered [Unknown]
